FAERS Safety Report 9307890 (Version 1)
Quarter: 2013Q2

REPORT INFORMATION
  Report Type: Spontaneous
  Country: US (occurrence: US)
  Receive Date: 20130524
  Receipt Date: 20130524
  Transmission Date: 20140414
  Serious: Yes (Other)
  Sender: FDA-Public Use
  Company Number: US-BRISTOL-MYERS SQUIBB COMPANY-18923128

PATIENT
  Sex: 0

DRUGS (1)
  1. PRAVASTATIN SODIUM [Suspect]

REACTIONS (1)
  - Cerebrovascular accident [Unknown]
